FAERS Safety Report 6795918-9 (Version None)
Quarter: 2010Q2

REPORT INFORMATION
  Report Type: 
  Country: None (occurrence: None)
  Receive Date: 20100625
  Receipt Date: 20100618
  Transmission Date: 20101027
  Serious: Yes (Hospitalization)
  Sender: FDA-Public Use
  Company Number: B0645941A

PATIENT
  Sex: Female

DRUGS (24)
  1. ATARAX [Suspect]
     Indication: DRUG USE FOR UNKNOWN INDICATION
     Dosage: 60MG PER DAY
     Route: 042
     Dates: start: 20100220, end: 20100220
  2. AUGMENTIN '125' [Suspect]
     Indication: DRUG USE FOR UNKNOWN INDICATION
     Dosage: 6MG PER DAY
     Route: 042
     Dates: start: 20100219, end: 20100224
  3. MOPRAL [Suspect]
     Indication: DRUG USE FOR UNKNOWN INDICATION
     Route: 042
     Dates: start: 20100219, end: 20100302
  4. CANCIDAS [Suspect]
     Indication: DRUG USE FOR UNKNOWN INDICATION
     Route: 042
     Dates: start: 20100222, end: 20100225
  5. SUFENTA PRESERVATIVE FREE [Suspect]
     Indication: DRUG USE FOR UNKNOWN INDICATION
     Route: 042
     Dates: start: 20100219, end: 20100302
  6. ACUPAN [Suspect]
     Indication: DRUG USE FOR UNKNOWN INDICATION
     Route: 042
     Dates: start: 20100220, end: 20100221
  7. HUMALOG [Suspect]
     Route: 058
     Dates: start: 20100219
  8. LOVENOX [Suspect]
     Indication: DRUG USE FOR UNKNOWN INDICATION
     Route: 058
     Dates: start: 20100220, end: 20100226
  9. NIMBEX [Suspect]
     Indication: DRUG USE FOR UNKNOWN INDICATION
     Route: 042
     Dates: start: 20100222, end: 20100224
  10. VECTARION [Suspect]
     Indication: DRUG USE FOR UNKNOWN INDICATION
     Route: 042
     Dates: start: 20100222, end: 20100224
  11. KETAMINE [Suspect]
     Indication: DRUG USE FOR UNKNOWN INDICATION
     Route: 042
     Dates: start: 20100219, end: 20100219
  12. ACTRAPID [Suspect]
     Indication: DRUG USE FOR UNKNOWN INDICATION
     Route: 042
     Dates: start: 20100219, end: 20100219
  13. ROCURONIUM BROMIDE [Suspect]
     Indication: DRUG USE FOR UNKNOWN INDICATION
     Route: 042
     Dates: start: 20100219, end: 20100219
  14. HYPNOVEL [Suspect]
     Indication: DRUG USE FOR UNKNOWN INDICATION
     Route: 042
     Dates: start: 20100219, end: 20100219
  15. TRACRIUM [Suspect]
     Indication: DRUG USE FOR UNKNOWN INDICATION
     Route: 042
     Dates: start: 20100219, end: 20100219
  16. PROPOFOL [Suspect]
     Indication: DRUG USE FOR UNKNOWN INDICATION
     Route: 065
     Dates: start: 20100219, end: 20100302
  17. EPHEDRINE [Suspect]
     Indication: DRUG USE FOR UNKNOWN INDICATION
     Route: 042
     Dates: start: 20100219, end: 20100219
  18. METFORMIN [Concomitant]
     Dosage: 150MG TWICE PER DAY
     Route: 065
  19. PRAVASTATIN SODIUM [Concomitant]
     Dosage: 20MG PER DAY
  20. ANAFRANIL [Concomitant]
     Dosage: 75MG TWICE PER DAY
     Route: 065
  21. SERESTA [Concomitant]
     Dosage: 50MG THREE TIMES PER DAY
     Route: 065
  22. LARGACTIL [Concomitant]
     Dosage: 25MG PER DAY
     Route: 065
  23. UNKNOWN [Concomitant]
  24. TARDYFERON [Concomitant]
     Dosage: 80MG PER DAY
     Route: 065

REACTIONS (6)
  - ANURIA [None]
  - PLEURAL EFFUSION [None]
  - RESPIRATORY DISTRESS [None]
  - SEPTIC SHOCK [None]
  - STEVENS-JOHNSON SYNDROME [None]
  - TOXIC SKIN ERUPTION [None]
